FAERS Safety Report 11172259 (Version 2)
Quarter: 2015Q3

REPORT INFORMATION
  Report Type: Spontaneous
  Country: US (occurrence: IT)
  Receive Date: 20150608
  Receipt Date: 20150702
  Transmission Date: 20151125
  Serious: Yes (Hospitalization)
  Sender: FDA-Public Use
  Company Number: IT-FRI-1000077187

PATIENT
  Sex: Male

DRUGS (2)
  1. ROFLUMILAST [Suspect]
     Active Substance: ROFLUMILAST
     Indication: PRODUCT USED FOR UNKNOWN INDICATION
     Route: 065
  2. ROFLUMILAST [Suspect]
     Active Substance: ROFLUMILAST
     Route: 065

REACTIONS (5)
  - Dyspnoea [Recovering/Resolving]
  - Headache [Unknown]
  - Dyspepsia [Unknown]
  - Decreased appetite [Unknown]
  - Somnolence [Unknown]
